FAERS Safety Report 11168176 (Version 3)
Quarter: 2016Q1

REPORT INFORMATION
  Report Type: Spontaneous
  Country: JP (occurrence: JP)
  Receive Date: 20150605
  Receipt Date: 20160203
  Transmission Date: 20160525
  Serious: Yes (Other)
  Sender: FDA-Public Use
  Company Number: JP-JNJFOC-20150520749

PATIENT

DRUGS (4)
  1. PEGINTRON [Suspect]
     Active Substance: PEGINTERFERON ALFA-2B
     Indication: CHRONIC HEPATITIS C
     Route: 058
  2. REBETOL [Suspect]
     Active Substance: RIBAVIRIN
     Indication: CHRONIC HEPATITIS C
     Route: 048
  3. REBETOL [Suspect]
     Active Substance: RIBAVIRIN
     Indication: CHRONIC HEPATITIS C
     Dosage: 600-1000MG
     Route: 048
  4. SOVRIAD [Suspect]
     Active Substance: SIMEPREVIR
     Indication: CHRONIC HEPATITIS C
     Route: 048

REACTIONS (16)
  - Hepatocellular carcinoma [Unknown]
  - Pancreatic carcinoma [Unknown]
  - Neutrophil count decreased [Unknown]
  - Anaemia [Unknown]
  - Platelet count decreased [Unknown]
  - Rash [Unknown]
  - Retinopathy [Unknown]
  - Infection [Unknown]
  - Fatigue [Unknown]
  - Haemoglobin decreased [Unknown]
  - Hepatitis C RNA increased [Unknown]
  - Blood bilirubin increased [Recovered/Resolved]
  - Basedow^s disease [Unknown]
  - Depression [Unknown]
  - Drug ineffective [Unknown]
  - Remission not achieved [Unknown]
